FAERS Safety Report 12197606 (Version 1)
Quarter: 2016Q1

REPORT INFORMATION
  Report Type: Report from Study
  Country: JP (occurrence: JP)
  Receive Date: 20160322
  Receipt Date: 20160322
  Transmission Date: 20160526
  Serious: Yes (Other)
  Sender: FDA-Public Use
  Company Number: JP-ACTELION-A-CH2016-131641

PATIENT
  Age: 20 Year
  Sex: Female

DRUGS (28)
  1. VELETRI [Suspect]
     Active Substance: EPOPROSTENOL
     Dosage: 19 NG/KG, PER MIN
     Route: 042
     Dates: start: 20140904, end: 20141002
  2. VELETRI [Suspect]
     Active Substance: EPOPROSTENOL
     Dosage: 22 NG/KG, PER MIN
     Route: 042
     Dates: start: 20141003, end: 20141204
  3. VELETRI [Suspect]
     Active Substance: EPOPROSTENOL
     Dosage: 35 NG/KG, PER MIN
     Route: 042
     Dates: start: 20150313, end: 20150507
  4. VELETRI [Suspect]
     Active Substance: EPOPROSTENOL
     Dosage: 39 NG/KG, PER MIN
     Route: 042
     Dates: start: 20150508, end: 20150604
  5. BETAMETHASONE. [Concomitant]
     Active Substance: BETAMETHASONE
  6. VELETRI [Suspect]
     Active Substance: EPOPROSTENOL
     Dosage: 24 NG/KG, PER MIN
     Route: 042
     Dates: start: 20141205, end: 20150108
  7. TRACLEER [Suspect]
     Active Substance: BOSENTAN
     Indication: PULMONARY ARTERIAL HYPERTENSION
     Dosage: 125 MG, BID
     Route: 048
     Dates: start: 20050808, end: 20150109
  8. WARFARIN [Concomitant]
     Active Substance: WARFARIN
  9. DIGOXIN. [Concomitant]
     Active Substance: DIGOXIN
  10. ISOSORBIDE. [Concomitant]
     Active Substance: ISOSORBIDE
  11. VELETRI [Suspect]
     Active Substance: EPOPROSTENOL
     Dosage: 43 NG/KG, PER MIN
     Route: 042
     Dates: start: 20150710
  12. VALSARTAN. [Concomitant]
     Active Substance: VALSARTAN
  13. FUROSEMIDE. [Concomitant]
     Active Substance: FUROSEMIDE
  14. CLOSTRIDIUM BUTYRICUM [Concomitant]
     Active Substance: CLOSTRIDIUM BUTYRICUM SPORES STRAIN M-55
  15. HEPARINOID [Concomitant]
     Active Substance: CHONDROITIN SULFATE (BOVINE)
  16. VELETRI [Suspect]
     Active Substance: EPOPROSTENOL
     Dosage: 17 NG/KG, PER MIN
     Route: 042
     Dates: start: 20140808, end: 20140903
  17. DIPHENHYDRAMIN [Concomitant]
     Active Substance: DIPHENHYDRAMINE
  18. VELETRI [Suspect]
     Active Substance: EPOPROSTENOL
     Dosage: 26 NG/KG, PER MIN
     Route: 042
     Dates: start: 20150109, end: 20150312
  19. VELETRI [Suspect]
     Active Substance: EPOPROSTENOL
     Dosage: 42 NG/KG, PER MIN
     Route: 042
     Dates: start: 20150605, end: 20150709
  20. SILDENAFIL. [Concomitant]
     Active Substance: SILDENAFIL
  21. GENTAMICIN. [Concomitant]
     Active Substance: GENTAMICIN
  22. AMBRISENTAN [Concomitant]
     Active Substance: AMBRISENTAN
  23. OXYGEN. [Concomitant]
     Active Substance: OXYGEN
  24. VELETRI [Suspect]
     Active Substance: EPOPROSTENOL
     Indication: PULMONARY ARTERIAL HYPERTENSION
     Dosage: 16.2 NG/KG, PER MIN
     Route: 042
     Dates: start: 20140704, end: 20140807
  25. FEXOFENADINE [Concomitant]
     Active Substance: FEXOFENADINE\FEXOFENADINE HYDROCHLORIDE
  26. SPIRONOLACTONE. [Concomitant]
     Active Substance: SPIRONOLACTONE
  27. FERROUS FUMERATE [Concomitant]
     Active Substance: FERROUS FUMARATE
  28. OLMESARTAN [Concomitant]
     Active Substance: OLMESARTAN

REACTIONS (5)
  - Aspartate aminotransferase increased [Recovered/Resolved]
  - Device breakage [Recovered/Resolved]
  - Device occlusion [Recovered/Resolved]
  - Liver disorder [Recovered/Resolved]
  - Alanine aminotransferase increased [Recovered/Resolved]

NARRATIVE: CASE EVENT DATE: 20140831
